FAERS Safety Report 8790668 (Version 1)
Quarter: 2012Q4

REPORT INFORMATION
  Report Type: Spontaneous
  Country: US (occurrence: None)
  Receive Date: 20120913
  Receipt Date: 20120913
  Transmission Date: 20130627
  Serious: Yes (Death, Life-Threatening, Hospitalization)
  Sender: FDA-Public Use
  Company Number: None

PATIENT
  Age: 61 Year
  Sex: Female
  Weight: 61.24 kg

DRUGS (1)
  1. HALAVEN [Suspect]
     Indication: BREAST CANCER
     Route: 042
     Dates: start: 20120515, end: 20120515

REACTIONS (11)
  - Contusion [None]
  - Oedema peripheral [None]
  - Pain in extremity [None]
  - Contusion [None]
  - Contusion [None]
  - Burning sensation [None]
  - Renal haemorrhage [None]
  - Monoplegia [None]
  - Blood count abnormal [None]
  - Blood disorder [None]
  - Cerebrovascular accident [None]
